FAERS Safety Report 12930962 (Version 1)
Quarter: 2016Q4

REPORT INFORMATION
  Report Type: Report from Study
  Country: None (occurrence: BE)
  Receive Date: 20161110
  Receipt Date: 20161110
  Transmission Date: 20170207
  Serious: Yes (Other)
  Sender: FDA-Public Use
  Company Number: BE-ABBVIE-16P-013-1774089-00

PATIENT
  Sex: Female

DRUGS (11)
  1. OTILONIUM BROMIDE (SPASMOMEM) [Concomitant]
     Indication: PRODUCT USED FOR UNKNOWN INDICATION
     Dosage: 3 PER DAY IF NEEDED
  2. BETACAROTENE, ASCORBIC ACID,TOCOPHERYL ACETATE, ZN, CU (PRESERVISION) [Concomitant]
     Indication: PRODUCT USED FOR UNKNOWN INDICATION
  3. LEVODOPA/BENSERAZIDE (PROLOPA) [Concomitant]
     Indication: PRODUCT USED FOR UNKNOWN INDICATION
     Dosage: FORM STRENGTH:100MG/25MG
  4. DUODOPA [Suspect]
     Active Substance: CARBIDOPA\LEVODOPA
     Dosage: AM DOSE=2.8ML; CD=3.2ML/H DURING 16HRS; ED=2ML; ND=1.8ML/H DURING 8HRS
     Route: 050
     Dates: start: 20160913
  5. ALPRAZOLAM. [Concomitant]
     Active Substance: ALPRAZOLAM
     Indication: PRODUCT USED FOR UNKNOWN INDICATION
  6. PERINDOPRIL (COVERSYL) [Concomitant]
     Indication: PRODUCT USED FOR UNKNOWN INDICATION
  7. DUODOPA [Suspect]
     Active Substance: CARBIDOPA\LEVODOPA
     Indication: PRODUCT USED FOR UNKNOWN INDICATION
     Dosage: AM DOSE=5ML; CD=1.3ML/H DURING 16HRS AND ED=1.2ML
     Route: 050
     Dates: start: 20120806, end: 20120810
  8. DUODOPA [Suspect]
     Active Substance: CARBIDOPA\LEVODOPA
     Dosage: DOSAGE CONTINUOUSLY MONITORED AND ADJUSTED
     Route: 050
     Dates: start: 20120810, end: 20160913
  9. BISOPROLOL [Concomitant]
     Active Substance: BISOPROLOL
     Indication: PRODUCT USED FOR UNKNOWN INDICATION
  10. LEVODOPA/BENSERAZIDE (PROLOPA) [Concomitant]
  11. CLOZAPINE (LEPONEX) [Concomitant]
     Indication: PRODUCT USED FOR UNKNOWN INDICATION

REACTIONS (1)
  - Cerebral thrombosis [Fatal]
